FAERS Safety Report 17085481 (Version 2)
Quarter: 2019Q4

REPORT INFORMATION
  Report Type: Spontaneous
  Country: CN (occurrence: CN)
  Receive Date: 20191128
  Receipt Date: 20191216
  Transmission Date: 20200122
  Serious: Yes (Hospitalization)
  Sender: FDA-Public Use
  Company Number: CN-ABBVIE-19K-035-3170559-00

PATIENT
  Age: 56 Year
  Sex: Female

DRUGS (2)
  1. MAVIRET [Suspect]
     Active Substance: GLECAPREVIR\PIBRENTASVIR
     Indication: CHRONIC HEPATITIS C
     Route: 048
     Dates: start: 20191118
  2. RALTEGRAVIR. [Concomitant]
     Active Substance: RALTEGRAVIR
     Indication: PRODUCT USED FOR UNKNOWN INDICATION
     Route: 048
     Dates: start: 20191117

REACTIONS (3)
  - Vomiting [Recovering/Resolving]
  - Asthenia [Recovering/Resolving]
  - Calculus urinary [Recovering/Resolving]

NARRATIVE: CASE EVENT DATE: 20191119
